FAERS Safety Report 18321007 (Version 7)
Quarter: 2021Q3

REPORT INFORMATION
  Report Type: Report from Study
  Country: CA (occurrence: CA)
  Receive Date: 20200928
  Receipt Date: 20210914
  Transmission Date: 20211014
  Serious: Yes (Death, Hospitalization, Other)
  Sender: FDA-Public Use
  Company Number: CA-SHIRE-CA202011224

PATIENT
  Age: 55 Year
  Sex: Female
  Weight: 82 kg

DRUGS (13)
  1. CUVITRU [Suspect]
     Active Substance: HUMAN IMMUNOGLOBULIN G
     Dosage: 12.5 GRAM, 1X/WEEK
     Route: 058
     Dates: start: 20181005
  2. CUVITRU [Suspect]
     Active Substance: HUMAN IMMUNOGLOBULIN G
     Dosage: 13 GRAM, 1X/WEEK
     Route: 065
     Dates: start: 20181005, end: 20210716
  3. ERYTHROMYCIN. [Concomitant]
     Active Substance: ERYTHROMYCIN
     Indication: NERVE BLOCK
     Dosage: UNK
     Route: 050
     Dates: start: 2019
  4. BREO ELLIPTA [Concomitant]
     Active Substance: FLUTICASONE FUROATE\VILANTEROL TRIFENATATE
     Indication: PRODUCT USED FOR UNKNOWN INDICATION
     Dosage: UNK
     Route: 065
  5. TARGIN [Concomitant]
     Active Substance: NALOXONE HYDROCHLORIDE\OXYCODONE HYDROCHLORIDE
     Indication: PAIN
     Dosage: UNK
     Route: 065
     Dates: start: 2020, end: 2020
  6. GRAVOL [Concomitant]
     Active Substance: DIMENHYDRINATE
     Indication: PRODUCT USED FOR UNKNOWN INDICATION
     Dosage: UNK
     Route: 065
  7. TUDORZA GENUAIR [Concomitant]
     Active Substance: ACLIDINIUM BROMIDE
     Indication: PRODUCT USED FOR UNKNOWN INDICATION
     Dosage: UNK
     Route: 065
  8. MORPHINE [Concomitant]
     Active Substance: MORPHINE
     Indication: PAIN
     Dosage: UNK
     Route: 065
  9. CUVITRU [Suspect]
     Active Substance: HUMAN IMMUNOGLOBULIN G
     Dosage: 12.5 GRAM, 1X/WEEK
     Route: 058
     Dates: start: 20181005
  10. VENTOLIN [Concomitant]
     Active Substance: ALBUTEROL SULFATE
     Indication: PRODUCT USED FOR UNKNOWN INDICATION
     Dosage: UNK
     Route: 065
  11. CUVITRU [Suspect]
     Active Substance: HUMAN IMMUNOGLOBULIN G
     Indication: PRIMARY IMMUNODEFICIENCY SYNDROME
     Dosage: 12.5 GRAM, 1X/WEEK
     Route: 058
     Dates: start: 20181005
  12. CUVITRU [Suspect]
     Active Substance: HUMAN IMMUNOGLOBULIN G
     Dosage: 12.5 GRAM, 1X/WEEK
     Route: 065
     Dates: start: 20200819
  13. PREDNISONE. [Concomitant]
     Active Substance: PREDNISONE
     Indication: NERVE BLOCK
     Dosage: UNK
     Route: 050
     Dates: start: 2019

REACTIONS (50)
  - Spinal fracture [Unknown]
  - Skin laceration [Unknown]
  - Infusion site mass [Not Recovered/Not Resolved]
  - Blood pressure decreased [Unknown]
  - Product leakage [Unknown]
  - Onychoclasis [Unknown]
  - Gastrointestinal disorder [Unknown]
  - Feeding disorder [Unknown]
  - Lower respiratory tract congestion [Unknown]
  - Irritable bowel syndrome [Unknown]
  - Sleep disorder [Unknown]
  - Movement disorder [Unknown]
  - Blood potassium decreased [Unknown]
  - Contusion [Unknown]
  - Headache [Unknown]
  - Incoherent [Unknown]
  - Hyperhidrosis [Unknown]
  - Concussion [Unknown]
  - Diarrhoea [Not Recovered/Not Resolved]
  - Back pain [Unknown]
  - Product quality issue [Unknown]
  - Abdominal infection [Recovering/Resolving]
  - Dyskinesia [Unknown]
  - Impaired driving ability [Unknown]
  - Illness [Unknown]
  - Chest discomfort [Unknown]
  - Nausea [Not Recovered/Not Resolved]
  - Blood immunoglobulin M decreased [Unknown]
  - Urinary tract infection [Unknown]
  - Weight decreased [Recovering/Resolving]
  - Vomiting [Not Recovered/Not Resolved]
  - Cardiac failure [Fatal]
  - Head injury [Recovering/Resolving]
  - Memory impairment [Recovering/Resolving]
  - Hypertension [Unknown]
  - Chills [Unknown]
  - Fall [Unknown]
  - Feeling abnormal [Recovering/Resolving]
  - Gastrointestinal viral infection [Recovering/Resolving]
  - Crying [Unknown]
  - Cold sweat [Unknown]
  - Alopecia [Unknown]
  - Confusional state [Unknown]
  - Asthenia [Unknown]
  - Condition aggravated [Unknown]
  - Muscular weakness [Unknown]
  - Infusion site swelling [Not Recovered/Not Resolved]
  - Blood immunoglobulin A decreased [Unknown]
  - Incorrect dose administered [Unknown]
  - Inappropriate schedule of product administration [Unknown]

NARRATIVE: CASE EVENT DATE: 2020
